FAERS Safety Report 25724036 (Version 1)
Quarter: 2025Q3

REPORT INFORMATION
  Report Type: Spontaneous
  Country: US (occurrence: US)
  Receive Date: 20250826
  Receipt Date: 20250826
  Transmission Date: 20251020
  Serious: Yes (Other)
  Sender: ROCHE
  Company Number: US-ROCHE-10000366602

PATIENT
  Age: 79 Year
  Sex: Female
  Weight: 54.43 kg

DRUGS (3)
  1. ACTEMRA [Suspect]
     Active Substance: TOCILIZUMAB
     Indication: Polymyalgia rheumatica
     Route: 042
     Dates: start: 20250605, end: 20250703
  2. ACTEMRA [Suspect]
     Active Substance: TOCILIZUMAB
     Indication: Giant cell arteritis
  3. PREDNISONE [Concomitant]
     Active Substance: PREDNISONE

REACTIONS (5)
  - Ocular hyperaemia [Not Recovered/Not Resolved]
  - Erythema of eyelid [Unknown]
  - Inflammation [Unknown]
  - Eye disorder [Not Recovered/Not Resolved]
  - Off label use [Unknown]
